FAERS Safety Report 18951978 (Version 1)
Quarter: 2021Q1

REPORT INFORMATION
  Report Type: Spontaneous
  Country: CA (occurrence: CA)
  Receive Date: 20210301
  Receipt Date: 20210301
  Transmission Date: 20210420
  Serious: Yes (Other)
  Sender: FDA-Public Use
  Company Number: CA-JNJFOC-20210243012

PATIENT
  Age: 36 Year
  Sex: Female

DRUGS (1)
  1. REMICADE [Suspect]
     Active Substance: INFLIXIMAB
     Indication: CROHN^S DISEASE
     Route: 042

REACTIONS (10)
  - Blood pressure increased [Unknown]
  - Drug specific antibody present [Unknown]
  - Condition aggravated [Unknown]
  - Drug level above therapeutic [Unknown]
  - Product use issue [Unknown]
  - Weight increased [Unknown]
  - Maternal exposure during pregnancy [Unknown]
  - Weight decreased [Unknown]
  - Intentional product use issue [Unknown]
  - Off label use [Unknown]
